FAERS Safety Report 10057133 (Version 3)
Quarter: 2014Q2

REPORT INFORMATION
  Report Type: Report from Study
  Country: TR (occurrence: TR)
  Receive Date: 20140403
  Receipt Date: 20140523
  Transmission Date: 20141212
  Serious: Yes (Death, Hospitalization)
  Sender: FDA-Public Use
  Company Number: TR-TEVA-470653USA

PATIENT
  Age: 80 Year
  Sex: Male

DRUGS (17)
  1. BENDAMUSTINE [Suspect]
     Indication: CHRONIC LYMPHOCYTIC LEUKAEMIA
     Dosage: (CYCLE 1 DAY 1) INFUSION RATE OF 163
     Route: 042
     Dates: start: 20140304
  2. BENDAMUSTINE [Suspect]
     Dosage: (CYCLE 1 DAY 2) INFUSION RATE 163
     Route: 042
     Dates: start: 20140305
  3. OBINUTUZUMAB [Suspect]
     Indication: CHRONIC LYMPHOCYTIC LEUKAEMIA
     Dosage: 25 MILLIGRAM DAILY; (CYCLE 1 DAY 1) WITH INFUSION RATE OF 12
     Route: 042
     Dates: start: 20140304
  4. OBINUTUZUMAB [Suspect]
     Dosage: 975 MILLIGRAM DAILY; (CYCLE 1 DAY 2) INFUSION RATE OF 50
     Route: 042
     Dates: start: 20140304
  5. OBINUTUZUMAB [Suspect]
     Dosage: 975 MILLIGRAM DAILY; (CYCLE 1 DAY 2) INFUSION RATE OF 50
     Route: 042
     Dates: start: 20140305
  6. GRANISETRON HYDROCHLORIDE [Concomitant]
     Indication: PROPHYLAXIS
     Route: 048
     Dates: start: 20140309, end: 20140309
  7. GRANISETRON HYDROCHLORIDE [Concomitant]
     Route: 042
     Dates: start: 20140304, end: 20140304
  8. GRANISETRON HYDROCHLORIDE [Concomitant]
     Route: 042
     Dates: start: 20140305, end: 20140305
  9. DEXAMETHASONE [Concomitant]
     Indication: PROPHYLAXIS
     Dosage: FREQUENCY: SINGLE DOSE
     Route: 042
     Dates: start: 20140304, end: 20140304
  10. DEXAMETHASONE [Concomitant]
     Dosage: FREQUENCY: SINGLE DOSE
     Route: 042
     Dates: start: 20140304, end: 20140304
  11. DEXAMETHASONE [Concomitant]
     Dosage: FREQUENCY: SINGLE DOSE
     Route: 042
     Dates: start: 20140305, end: 20140305
  12. PHENIRAMINE MALEATE [Concomitant]
     Indication: PROPHYLAXIS
     Dosage: FREQUENCY: SINGLE DOSE
     Route: 042
     Dates: start: 20140304, end: 20140304
  13. PHENIRAMINE MALEATE [Concomitant]
     Route: 042
     Dates: start: 20140304, end: 20140304
  14. PHENIRAMINE MALEATE [Concomitant]
     Dosage: FREQUENCY: SINGLE DOSE
     Route: 042
     Dates: start: 20140305, end: 20140305
  15. RANITIDINE HYDROCHLORIDE [Concomitant]
     Indication: PROPHYLAXIS
     Dosage: FREQUENCY: SINGLE DOSE
     Route: 042
     Dates: start: 20140304, end: 20140304
  16. RANITIDINE HYDROCHLORIDE [Concomitant]
     Dosage: FREQUENCY: SINGLE DOSE
     Route: 042
     Dates: start: 20140304, end: 20140304
  17. RANITIDINE HYDROCHLORIDE [Concomitant]
     Dosage: FREQUENCY: SINGLE DOSE
     Route: 042
     Dates: start: 20140305, end: 20140305

REACTIONS (2)
  - Tumour lysis syndrome [Fatal]
  - Febrile neutropenia [Fatal]
